FAERS Safety Report 8062101-9 (Version None)
Quarter: 2012Q1

REPORT INFORMATION
  Report Type: 
  Country: None (occurrence: None)
  Receive Date: 20120118
  Receipt Date: 20120109
  Transmission Date: 20120608
  Serious: Yes (Death)
  Sender: FDA-Public Use
  Company Number: JPI-P-008185

PATIENT
  Age: 47 Year
  Sex: Male

DRUGS (4)
  1. XYREM [Suspect]
     Indication: CATAPLEXY
     Dosage: 4.5 GM (2.25 GM, 2 IN 1 D), ORAL 3 GM (1.5 GM, 2 IN 1 D), ORAL
     Route: 048
     Dates: start: 20030911
  2. XYREM [Suspect]
     Indication: NARCOLEPSY
     Dosage: 4.5 GM (2.25 GM, 2 IN 1 D), ORAL 3 GM (1.5 GM, 2 IN 1 D), ORAL
     Route: 048
     Dates: start: 20030911
  3. XYREM [Suspect]
     Indication: CATAPLEXY
     Dosage: 4.5 GM (2.25 GM, 2 IN 1 D), ORAL 3 GM (1.5 GM, 2 IN 1 D), ORAL
     Route: 048
     Dates: start: 20090317
  4. XYREM [Suspect]
     Indication: NARCOLEPSY
     Dosage: 4.5 GM (2.25 GM, 2 IN 1 D), ORAL 3 GM (1.5 GM, 2 IN 1 D), ORAL
     Route: 048
     Dates: start: 20090317

REACTIONS (4)
  - ACUTE MYOCARDIAL INFARCTION [None]
  - DIABETES MELLITUS [None]
  - HYPERLIPIDAEMIA [None]
  - CONVULSION [None]
